FAERS Safety Report 8957095 (Version 3)
Quarter: 2013Q1

REPORT INFORMATION
  Report Type: Spontaneous
  Country: US (occurrence: US)
  Receive Date: 20121211
  Receipt Date: 20130118
  Transmission Date: 20140127
  Serious: Yes (Life-Threatening, Hospitalization, Disabling, Other)
  Sender: FDA-Public Use
  Company Number: US-009507513-1212USA002845

PATIENT
  Sex: 0

DRUGS (6)
  1. MAXALT MLT [Suspect]
     Indication: MIGRAINE
     Dosage: 10 MG, PRN
     Route: 048
     Dates: end: 20121202
  2. FLUOXETINE [Concomitant]
     Indication: DEPRESSION
     Dosage: 10 MG QD
  3. VITAMIN D (UNSPECIFIED) [Concomitant]
     Dosage: 100 UNITS
  4. ADVIL [Concomitant]
     Indication: MIGRAINE
     Dosage: TWO TABLETS
     Dates: start: 20121202
  5. PHENYLTOLOXAMINE [Concomitant]
     Dosage: 10 MG
     Dates: end: 20121202
  6. RELPAX [Concomitant]
     Indication: MIGRAINE
     Dosage: UNK
     Dates: start: 20121130

REACTIONS (13)
  - Ventricular tachycardia [Recovered/Resolved]
  - Arteriospasm coronary [Recovered/Resolved]
  - Cardiac arrest [Not Recovered/Not Resolved]
  - Implantable defibrillator insertion [Unknown]
  - Electrocardiogram abnormal [Unknown]
  - Paranasal cyst [Unknown]
  - Sinus disorder [Unknown]
  - Sinus tachycardia [Recovered/Resolved]
  - Dyslipidaemia [Unknown]
  - Glucose tolerance impaired [Unknown]
  - Fibromuscular dysplasia [Unknown]
  - Diastolic dysfunction [Unknown]
  - Cerebral infarction [Unknown]
